FAERS Safety Report 9472406 (Version 1)
Quarter: 2013Q3

REPORT INFORMATION
  Report Type: Spontaneous
  Country: US (occurrence: None)
  Receive Date: 20130821
  Receipt Date: 20130821
  Transmission Date: 20140515
  Serious: No
  Sender: FDA-Public Use
  Company Number: None

PATIENT
  Age: 46 Year
  Sex: Female
  Weight: 54.43 kg

DRUGS (1)
  1. CIPROFLOXACIN HCL [Suspect]
     Indication: URINARY TRACT INFECTION
     Route: 048
     Dates: start: 20130815, end: 20130819

REACTIONS (8)
  - Headache [None]
  - Arthralgia [None]
  - Feeling abnormal [None]
  - Facial pain [None]
  - Joint stiffness [None]
  - Hypoaesthesia [None]
  - Paraesthesia [None]
  - Micturition urgency [None]
